FAERS Safety Report 25107021 (Version 2)
Quarter: 2025Q1

REPORT INFORMATION
  Report Type: Report from Study
  Country: AT (occurrence: AT)
  Receive Date: 20250321
  Receipt Date: 20250328
  Transmission Date: 20250408
  Serious: Yes (Death)
  Sender: DAIICHI
  Company Number: AT-DSJP-DS-2025-131975-AT

PATIENT
  Sex: Male

DRUGS (4)
  1. DATOPOTAMAB DERUXTECAN [Suspect]
     Active Substance: DATOPOTAMAB DERUXTECAN
     Indication: Non-small cell lung cancer
     Route: 042
     Dates: start: 20240904, end: 20240904
  2. DATOPOTAMAB DERUXTECAN [Suspect]
     Active Substance: DATOPOTAMAB DERUXTECAN
     Route: 042
     Dates: start: 20240925, end: 20240925
  3. DATOPOTAMAB DERUXTECAN [Suspect]
     Active Substance: DATOPOTAMAB DERUXTECAN
     Route: 042
     Dates: start: 20241016, end: 20241016
  4. DATOPOTAMAB DERUXTECAN [Suspect]
     Active Substance: DATOPOTAMAB DERUXTECAN
     Route: 042
     Dates: start: 20241106, end: 20241106

REACTIONS (1)
  - Circulatory collapse [Fatal]
